FAERS Safety Report 15419745 (Version 3)
Quarter: 2018Q3

REPORT INFORMATION
  Report Type: Report from Study
  Country: None (occurrence: BR)
  Receive Date: 20180924
  Receipt Date: 20180928
  Transmission Date: 20181010
  Serious: Yes (Life-Threatening, Hospitalization)
  Sender: FDA-Public Use
  Company Number: BR-ABBVIE-18K-020-2495182-00

PATIENT
  Sex: Female
  Weight: 59 kg

DRUGS (2)
  1. HUMIRA [Suspect]
     Active Substance: ADALIMUMAB
     Indication: SPONDYLITIS
     Route: 058
     Dates: start: 20161216
  2. HUMIRA [Suspect]
     Active Substance: ADALIMUMAB
     Route: 058

REACTIONS (12)
  - Feeling abnormal [Recovered/Resolved]
  - Dental caries [Not Recovered/Not Resolved]
  - Bone development abnormal [Unknown]
  - Hypertension [Not Recovered/Not Resolved]
  - Osteoarthritis [Unknown]
  - Tooth erosion [Not Recovered/Not Resolved]
  - Depression [Recovering/Resolving]
  - Nausea [Recovered/Resolved]
  - Peripheral swelling [Recovered/Resolved]
  - Depressed mood [Recovered/Resolved]
  - Tooth demineralisation [Not Recovered/Not Resolved]
  - Suicide attempt [Unknown]

NARRATIVE: CASE EVENT DATE: 2016
